FAERS Safety Report 22619830 (Version 1)
Quarter: 2023Q2

REPORT INFORMATION
  Report Type: Spontaneous
  Country: US (occurrence: None)
  Receive Date: 20230616
  Receipt Date: 20230616
  Transmission Date: 20230721
  Serious: Yes (Other)
  Sender: FDA-Public Use
  Company Number: None

PATIENT
  Age: 68 Year
  Sex: Female
  Weight: 112 kg

DRUGS (2)
  1. KIMYRSA [Suspect]
     Active Substance: ORITAVANCIN DIPHOSPHATE
     Indication: Localised infection
     Dosage: OTHER FREQUENCY : ONE TIME DOSE;?
     Route: 041
     Dates: start: 20230414, end: 20230414
  2. 5% Dextrose 250ml [Concomitant]
     Dates: start: 20230414, end: 20230414

REACTIONS (3)
  - Arthropathy [None]
  - Feeling abnormal [None]
  - Infusion related reaction [None]

NARRATIVE: CASE EVENT DATE: 20230414
